FAERS Safety Report 6264954-3 (Version None)
Quarter: 2009Q3

REPORT INFORMATION
  Report Type: 
  Country: None (occurrence: None)
  Receive Date: 20090713
  Receipt Date: 20090702
  Transmission Date: 20100115
  Serious: Yes (Other)
  Sender: FDA-Public Use
  Company Number: DE-RANBAXY-2009RR-25481

PATIENT
  Age: 19 Month
  Sex: Female
  Weight: 9.6 kg

DRUGS (1)
  1. CEFACLOR [Suspect]
     Indication: OTITIS MEDIA
     Dosage: UNK
     Dates: start: 20090601, end: 20090608

REACTIONS (3)
  - EYELID OEDEMA [None]
  - OEDEMA PERIPHERAL [None]
  - URTICARIA PRESSURE [None]
